FAERS Safety Report 8920983 (Version 1)
Quarter: 2012Q4

REPORT INFORMATION
  Report Type: 
  Country: US (occurrence: US)
  Receive Date: 20121121
  Receipt Date: 20121121
  Transmission Date: 20130627
  Serious: Yes (Other)
  Sender: FDA-Public Use
  Company Number: US-009507513-1211USA008298

PATIENT
  Age: 66 Year
  Sex: Male

DRUGS (2)
  1. EPTIFIBATIDE [Suspect]
     Dosage: 180 Microgram per kilogram, UNK
     Route: 042
  2. EPTIFIBATIDE [Suspect]
     Dosage: 1 Microgram per kilogram per minute

REACTIONS (2)
  - Upper gastrointestinal haemorrhage [Recovered/Resolved]
  - Peptic ulcer [Recovered/Resolved]
